FAERS Safety Report 12704568 (Version 1)
Quarter: 2016Q3

REPORT INFORMATION
  Report Type: Spontaneous
  Country: US (occurrence: US)
  Receive Date: 20160831
  Receipt Date: 20160831
  Transmission Date: 20161109
  Serious: No
  Sender: FDA-Public Use
  Company Number: US-SA-2016SA061435

PATIENT

DRUGS (19)
  1. BENADRYL [Concomitant]
     Active Substance: DIPHENHYDRAMINE HYDROCHLORIDE
     Indication: PRURITUS
  2. AVAPRO [Suspect]
     Active Substance: IRBESARTAN
     Route: 065
  3. ALLEGRA [Concomitant]
     Active Substance: FEXOFENADINE HYDROCHLORIDE
  4. TOPROL XL [Concomitant]
     Active Substance: METOPROLOL SUCCINATE
  5. ACTEMRA [Concomitant]
     Active Substance: TOCILIZUMAB
     Route: 042
     Dates: start: 20160301
  6. LYRICA [Concomitant]
     Active Substance: PREGABALIN
     Dosage: MOST OF THE TIME 1 AT PM IS SUFFICIENT
  7. MORPHINE SULFATE. [Concomitant]
     Active Substance: MORPHINE SULFATE
     Indication: ARTHRALGIA
  8. MORPHINE SULFATE. [Concomitant]
     Active Substance: MORPHINE SULFATE
     Indication: MIGRAINE
  9. NALTREXONE [Concomitant]
     Active Substance: NALTREXONE
     Indication: PAIN
  10. VOLTAREN [Concomitant]
     Active Substance: DICLOFENAC SODIUM
     Dosage: APPLY 4 GMS TO AFFECTED AREA 4 TIMES DAILY
  11. DIFLUCAN [Concomitant]
     Active Substance: FLUCONAZOLE
     Indication: FUNGAL INFECTION
     Dosage: 150 MG 1 CAP PER DAY FOR 5 DAYS
  12. ZANAFLEX [Concomitant]
     Active Substance: TIZANIDINE HYDROCHLORIDE
     Dosage: 1/2 TAB AM; 1/2 TAB PM
     Route: 048
  13. ULTRAM [Concomitant]
     Active Substance: TRAMADOL HYDROCHLORIDE
     Dosage: 3-4 TIMES PER DAY
  14. CLONAZEPAM. [Concomitant]
     Active Substance: CLONAZEPAM
  15. LEFLUNOMIDE. [Concomitant]
     Active Substance: LEFLUNOMIDE
  16. MUCINEX [Concomitant]
     Active Substance: GUAIFENESIN
  17. FOLIC ACID. [Concomitant]
     Active Substance: FOLIC ACID
  18. PRILOSEC [Concomitant]
     Active Substance: OMEPRAZOLE MAGNESIUM
  19. PENNSAID [Concomitant]
     Active Substance: DICLOFENAC SODIUM
     Dosage: RUB ON PAINFUL JOINTS
     Route: 061

REACTIONS (1)
  - Blood pressure decreased [Unknown]
